FAERS Safety Report 18779064 (Version 1)
Quarter: 2021Q1

REPORT INFORMATION
  Report Type: Spontaneous
  Country: CZ (occurrence: CZ)
  Receive Date: 20210125
  Receipt Date: 20210125
  Transmission Date: 20210419
  Serious: Yes (Other)
  Sender: FDA-Public Use
  Company Number: CZ-AUROBINDO-AUR-APL-2020-062952

PATIENT
  Age: 44 Year
  Sex: Female

DRUGS (6)
  1. VENLAFAXINE [Interacting]
     Active Substance: VENLAFAXINE HYDROCHLORIDE
     Indication: PROPHYLAXIS
  2. TOPIRAMATE. [Suspect]
     Active Substance: TOPIRAMATE
     Indication: MIGRAINE
     Dosage: UNK
     Route: 065
  3. VALPROIC ACID. [Suspect]
     Active Substance: VALPROIC ACID
     Indication: MIGRAINE
     Dosage: UNK
     Route: 065
  4. METOPROLOL. [Suspect]
     Active Substance: METOPROLOL
     Indication: MIGRAINE
     Dosage: 200 MILLIGRAM (TITRATED TO A DOSE OF 200 MG)
     Route: 065
     Dates: start: 201101
  5. METOPROLOL. [Interacting]
     Active Substance: METOPROLOL
     Indication: PROPHYLAXIS
     Dosage: 50 MILLIGRAM, ONCE A DAY
     Route: 065
  6. VENLAFAXINE [Interacting]
     Active Substance: VENLAFAXINE HYDROCHLORIDE
     Indication: MIGRAINE
     Dosage: 75 MILLIGRAM, ONCE A DAY
     Route: 065
     Dates: start: 201208

REACTIONS (12)
  - Cardiovascular disorder [Unknown]
  - Blood pressure increased [Recovered/Resolved]
  - Drug intolerance [Unknown]
  - Alopecia [Unknown]
  - Incorrect dose administered [Unknown]
  - Medication error [Unknown]
  - Asthenia [Unknown]
  - Weight increased [Unknown]
  - Off label use [Unknown]
  - Palpitations [Recovered/Resolved]
  - Migraine [Unknown]
  - Drug interaction [Unknown]

NARRATIVE: CASE EVENT DATE: 2012
